FAERS Safety Report 5237927-7 (Version None)
Quarter: 2007Q1

REPORT INFORMATION
  Report Type: 
  Country: None (occurrence: None)
  Receive Date: 20070209
  Receipt Date: 20070130
  Transmission Date: 20070707
  Serious: Yes (Disabling)
  Sender: FDA-Public Use
  Company Number: CIP07000242

PATIENT
  Sex: Female

DRUGS (8)
  1. ACTONEL [Suspect]
     Indication: OSTEOPOROSIS PROPHYLAXIS
     Dosage: 35 MG ONCE WEEKLY, ORAL
     Route: 048
     Dates: start: 20060401, end: 20060601
  2. PREDNISONE TAB [Concomitant]
  3. VALSARTAN [Concomitant]
  4. NICARDIPINE HYDROCHLORIDE [Concomitant]
  5. LESCOL /0122450/ (FLUVASTATIN) [Concomitant]
  6. GLUCOPHAGE  /01224501/ (METFORMIN) [Concomitant]
  7. CALCIUM (CALCIUM) [Concomitant]
  8. VITAMIN D /00107901/ (ERGOCALCIFEROL) [Concomitant]

REACTIONS (2)
  - NEPHROTIC SYNDROME [None]
  - RENAL IMPAIRMENT [None]
